FAERS Safety Report 5957041-2 (Version None)
Quarter: 2008Q4

REPORT INFORMATION
  Report Type: 
  Country: None (occurrence: None)
  Receive Date: 20081118
  Receipt Date: 20081009
  Transmission Date: 20090506
  Serious: No
  Sender: FDA-Public Use
  Company Number: A0751134A

PATIENT
  Age: 73 Year
  Sex: Female

DRUGS (15)
  1. COREG CR [Suspect]
     Indication: HYPERTENSION
     Dosage: 40MG PER DAY
     Route: 048
     Dates: start: 20080101
  2. AGGRENOX [Concomitant]
  3. CLARINEX [Concomitant]
  4. ZETIA [Concomitant]
  5. CRESTOR [Concomitant]
  6. DIOVAN [Concomitant]
  7. FUROSEMIDE [Concomitant]
  8. PROTONIX [Concomitant]
  9. VITAMINS [Concomitant]
  10. CALCIUM [Concomitant]
  11. VIT D [Concomitant]
  12. MAGNESIUM SULFATE [Concomitant]
  13. ZINC [Concomitant]
  14. COQ-10 [Concomitant]
  15. AMILORIDE HYDROCHLORIDE [Concomitant]

REACTIONS (1)
  - ALOPECIA [None]
